FAERS Safety Report 6498030-1 (Version None)
Quarter: 2009Q4

REPORT INFORMATION
  Report Type: 
  Country: None (occurrence: None)
  Receive Date: 20091215
  Receipt Date: 20091204
  Transmission Date: 20100525
  Serious: Yes (Hospitalization)
  Sender: FDA-Public Use
  Company Number: PHHO2009DE14109

PATIENT
  Sex: Female
  Weight: 168 kg

DRUGS (3)
  1. SIMULECT [Suspect]
     Indication: RENAL TRANSPLANT
     Dosage: UNK
     Route: 042
  2. CERTICAN [Suspect]
     Indication: RENAL TRANSPLANT
     Dosage: UNK
     Route: 048
  3. MYFORTIC [Suspect]
     Indication: RENAL TRANSPLANT

REACTIONS (5)
  - CONCOMITANT DISEASE PROGRESSION [None]
  - DIARRHOEA [None]
  - DRUG INEFFECTIVE [None]
  - KIDNEY TRANSPLANT REJECTION [None]
  - LEUKOPENIA [None]
